FAERS Safety Report 19484923 (Version 1)
Quarter: 2021Q3

REPORT INFORMATION
  Report Type: Spontaneous
  Country: US (occurrence: US)
  Receive Date: 20210701
  Receipt Date: 20210701
  Transmission Date: 20211014
  Serious: Yes (Other)
  Sender: FDA-Public Use
  Company Number: US-ENDO PHARMACEUTICALS INC-2021-002911

PATIENT
  Age: 76 Year
  Sex: Male

DRUGS (2)
  1. RANITIDINE HYDROCHLORIDE. [Suspect]
     Active Substance: RANITIDINE HYDROCHLORIDE
     Indication: HYPERCHLORHYDRIA
     Dosage: UNK UNK, DAILY
     Route: 065
     Dates: start: 200506, end: 201705
  2. RANITIDINE. [Suspect]
     Active Substance: RANITIDINE
     Indication: HYPERCHLORHYDRIA
     Dosage: UNK UNK, DAILY
     Route: 065
     Dates: start: 200506, end: 201705

REACTIONS (1)
  - Bladder cancer stage II [Recovering/Resolving]

NARRATIVE: CASE EVENT DATE: 20150501
